FAERS Safety Report 24444428 (Version 2)
Quarter: 2024Q4

REPORT INFORMATION
  Report Type: Report from Study
  Country: US (occurrence: US)
  Receive Date: 20241016
  Receipt Date: 20241017
  Transmission Date: 20250115
  Serious: No
  Sender: ROCHE
  Company Number: US-ROCHE-2784614

PATIENT
  Age: 49 Year
  Sex: Female

DRUGS (5)
  1. RITUXAN [Suspect]
     Active Substance: RITUXIMAB
     Indication: Demyelination
     Dosage: 1 DAY EVERY 3 TO 6 MONTHS
     Route: 042
  2. RITUXAN [Suspect]
     Active Substance: RITUXIMAB
     Indication: Autonomic neuropathy
     Dosage: 10 MG/ML
     Route: 042
  3. PLAVIX [Concomitant]
     Active Substance: CLOPIDOGREL BISULFATE
  4. XANAX [Concomitant]
     Active Substance: ALPRAZOLAM
     Indication: Demyelination
  5. XANAX [Concomitant]
     Active Substance: ALPRAZOLAM
     Indication: Autonomic neuropathy

REACTIONS (2)
  - Off label use [Unknown]
  - No adverse event [Unknown]
